FAERS Safety Report 17631334 (Version 1)
Quarter: 2020Q2

REPORT INFORMATION
  Report Type: Spontaneous
  Country: FR (occurrence: FR)
  Receive Date: 20200406
  Receipt Date: 20200406
  Transmission Date: 20200713
  Serious: Yes (Other)
  Sender: FDA-Public Use
  Company Number: FR-SA-2020SA080976

PATIENT
  Age: 84 Year
  Sex: Male
  Weight: 72 kg

DRUGS (7)
  1. PRIMPERAN [Concomitant]
     Active Substance: METOCLOPRAMIDE HYDROCHLORIDE
  2. LANSOPRAZOLE. [Concomitant]
     Active Substance: LANSOPRAZOLE
  3. LOVENOX [Suspect]
     Active Substance: ENOXAPARIN SODIUM
     Indication: CEREBRAL VENOUS THROMBOSIS
     Dosage: UNK
     Route: 058
  4. MORPHINE [Concomitant]
     Active Substance: MORPHINE
  5. COUMADIN [Interacting]
     Active Substance: WARFARIN SODIUM
     Indication: PROPHYLAXIS
     Dosage: UNK
     Route: 048
     Dates: start: 20200219, end: 20200309
  6. PHLOROGLUCINOL;TRIMETHYLPHLOROGLUCINOL [Concomitant]
  7. PAROXETINE HYDROCHLORIDE. [Concomitant]
     Active Substance: PAROXETINE HYDROCHLORIDE

REACTIONS (3)
  - Drug interaction [Unknown]
  - Gastrostomy tube site complication [Recovered/Resolved]
  - Haemorrhage [Recovered/Resolved]

NARRATIVE: CASE EVENT DATE: 20200219
